FAERS Safety Report 9789276 (Version 2)
Quarter: 2014Q1

REPORT INFORMATION
  Report Type: Report from Study
  Country: US (occurrence: US)
  Receive Date: 20131230
  Receipt Date: 20140110
  Transmission Date: 20141002
  Serious: Yes (Other)
  Sender: FDA-Public Use
  Company Number: US-ROCHE-1327006

PATIENT
  Age: 16 Year
  Sex: Male
  Weight: 106.24 kg

DRUGS (6)
  1. XOLAIR [Suspect]
     Indication: ASTHMA
     Dosage: DOSE VOLUME: 2.4 ML
     Route: 058
     Dates: start: 20130611, end: 20130611
  2. MONTELUKAST [Concomitant]
     Indication: ASTHMA
     Route: 048
     Dates: start: 20130426
  3. DULERA [Concomitant]
     Indication: ASTHMA
     Dosage: DOSE 200/5
     Route: 065
     Dates: start: 20130426
  4. ZETONNA [Concomitant]
     Indication: ASTHMA
     Dosage: ROUTE:EN  DOSE 1 PUFF, FREQUENCY:4 DAYS
     Route: 065
  5. AZELASTINE [Concomitant]
     Indication: ASTHMA
     Dosage: 1, 2 SPRAY.  ROUTE: EN
     Route: 065
  6. ALBUTEROL [Concomitant]
     Indication: ASTHMA
     Dosage: 2 PUFFS 94-6,? INHALE AS REQUIRED
     Route: 065

REACTIONS (2)
  - Anaphylactic reaction [Unknown]
  - Dyspnoea [Recovered/Resolved]
